FAERS Safety Report 20278731 (Version 1)
Quarter: 2022Q1

REPORT INFORMATION
  Report Type: Spontaneous
  Country: CA (occurrence: CA)
  Receive Date: 20220103
  Receipt Date: 20220103
  Transmission Date: 20220423
  Serious: Yes (Other)
  Sender: FDA-Public Use
  Company Number: CA-SA-2019SA044779

PATIENT
  Sex: Male

DRUGS (16)
  1. LEFLUNOMIDE [Suspect]
     Active Substance: LEFLUNOMIDE
     Dosage: 20 MG, QD, STARTED PRIOR TO 2013
     Route: 065
  2. METHOTREXATE [Suspect]
     Active Substance: METHOTREXATE
     Dosage: UNK
     Route: 065
  3. COLCHICINE [Suspect]
     Active Substance: COLCHICINE
  4. DOXYCYCLINE [Suspect]
     Active Substance: DOXYCYCLINE
  5. HYDROXYCHLOROQUINE [Suspect]
     Active Substance: HYDROXYCHLOROQUINE
  6. USTEKINUMAB [Suspect]
     Active Substance: USTEKINUMAB
     Dosage: UNK
     Route: 065
     Dates: start: 200901, end: 201201
  7. HUMIRA [Suspect]
     Active Substance: ADALIMUMAB
     Dosage: 40 MG, BIW STARTED PRIOR TO 2013
     Route: 065
  8. AZATHIOPRINE [Suspect]
     Active Substance: AZATHIOPRINE
     Dosage: 150 MG, QD,STARTED PRIOR TO 2013- JUL2017
     Dates: end: 201707
  9. CYCLOSPORINE [Suspect]
     Active Substance: CYCLOSPORINE
     Dosage: UNK
  10. PAMIDRONATE [Suspect]
     Active Substance: PAMIDRONATE DISODIUM
  11. ENBREL [Suspect]
     Active Substance: ETANERCEPT
  12. BROMOCRIPTINE [Suspect]
     Active Substance: BROMOCRIPTINE
  13. GOLD [Suspect]
     Active Substance: GOLD
  14. TENOXICAM [Concomitant]
     Active Substance: TENOXICAM
     Dosage: UNK
     Route: 065
  15. MERCAPTOPURINE [Concomitant]
     Active Substance: MERCAPTOPURINE
     Dosage: UNK
     Route: 065
  16. DILAUDID [Concomitant]
     Active Substance: HYDROMORPHONE HYDROCHLORIDE
     Dosage: UNK
     Route: 065

REACTIONS (8)
  - Sepsis [Unknown]
  - Interstitial lung disease [Unknown]
  - Hepatotoxicity [Unknown]
  - Gastrointestinal disorder [Unknown]
  - Liver function test increased [Unknown]
  - Drug intolerance [Unknown]
  - Drug ineffective [Unknown]
  - Treatment failure [Unknown]
